FAERS Safety Report 17963996 (Version 1)
Quarter: 2020Q2

REPORT INFORMATION
  Report Type: Spontaneous
  Country: LV (occurrence: LV)
  Receive Date: 20200630
  Receipt Date: 20200630
  Transmission Date: 20200714
  Serious: Yes (Hospitalization)
  Sender: FDA-Public Use
  Company Number: LV-JNJFOC-20200631999

PATIENT
  Age: 77 Year
  Sex: Male

DRUGS (4)
  1. SOTALOLI HYDROCHLORIDUM [Concomitant]
     Dosage: 80 MG, QD
  2. XARELTO [Suspect]
     Active Substance: RIVAROXABAN
     Indication: ATRIAL FIBRILLATION
     Dosage: 1 DF
     Route: 048
  3. PERINDOPRIL [Concomitant]
     Active Substance: PERINDOPRIL
     Dosage: 5 MG, QD
  4. AMLODIPINE [Concomitant]
     Active Substance: AMLODIPINE BESYLATE
     Dosage: 5 MG, QD

REACTIONS (7)
  - Speech disorder [Unknown]
  - Transient ischaemic attack [Recovering/Resolving]
  - Facial paresis [Unknown]
  - Visual impairment [Recovering/Resolving]
  - Cerebral infarction [Recovering/Resolving]
  - Fall [Unknown]
  - Muscular weakness [Unknown]

NARRATIVE: CASE EVENT DATE: 20200508
